FAERS Safety Report 14362947 (Version 1)
Quarter: 2018Q1

REPORT INFORMATION
  Report Type: Spontaneous
  Country: US (occurrence: US)
  Receive Date: 20180108
  Receipt Date: 20180108
  Transmission Date: 20180509
  Serious: No
  Sender: FDA-Public Use
  Company Number: US-JNJFOC-20171238516

PATIENT
  Sex: Male
  Weight: 99.34 kg

DRUGS (6)
  1. NYSTATIN. [Concomitant]
     Active Substance: NYSTATIN
     Route: 065
  2. SILVER SULFADIAZINE. [Concomitant]
     Active Substance: SILVER SULFADIAZINE
     Route: 065
  3. ANDROGEL [Concomitant]
     Active Substance: TESTOSTERONE
     Route: 065
  4. STELARA [Suspect]
     Active Substance: USTEKINUMAB
     Indication: PSORIATIC ARTHROPATHY
     Route: 058
     Dates: start: 201711
  5. DOCUSATE [Concomitant]
     Active Substance: DOCUSATE
     Route: 065
  6. ALBUTEROL. [Concomitant]
     Active Substance: ALBUTEROL
     Route: 065

REACTIONS (2)
  - Nasopharyngitis [Unknown]
  - Malaise [Unknown]
